FAERS Safety Report 11760558 (Version 1)
Quarter: 2015Q4

REPORT INFORMATION
  Report Type: Spontaneous
  Country: NL (occurrence: NL)
  Receive Date: 20151120
  Receipt Date: 20151120
  Transmission Date: 20160304
  Serious: Yes (Hospitalization)
  Sender: FDA-Public Use
  Company Number: NL-SA-2015SA181442

PATIENT
  Age: 79 Year
  Sex: Female

DRUGS (19)
  1. LYRICA [Concomitant]
     Active Substance: PREGABALIN
     Dosage: DOSE: 2DD2?STRENGTH: 75 MG
     Route: 048
  2. PARACETAMOL [Concomitant]
     Active Substance: ACETAMINOPHEN
     Dosage: DOSE: 4DD2?STRENGTH: 500 MG
     Route: 048
  3. MOVICOLON [Concomitant]
     Active Substance: POLYETHYLENE GLYCOL 3350\POTASSIUM CHLORIDE\SODIUM BICARBONATE\SODIUM CHLORIDE
     Dosage: DOSE: 1DD1?POWDER FOR ORAL SOLUTION IN SACHET
     Route: 048
  4. MONO-CEDOCARD RETARD [Concomitant]
     Dosage: DOSE: 1DD1?STRENGTH: 100 MG
     Route: 048
  5. DUROGESIC [Concomitant]
     Active Substance: FENTANYL
     Dosage: FORM: PLASTER 12MCG/UUR
     Route: 062
  6. SIRDALUD [Suspect]
     Active Substance: TIZANIDINE
     Route: 048
     Dates: start: 201411, end: 20151030
  7. OXYNORM [Suspect]
     Active Substance: OXYCODONE HYDROCHLORIDE
     Dosage: FORM:ORIODISPERSABLE TABLET
     Route: 060
     Dates: start: 20151004, end: 20151030
  8. CRESTOR [Concomitant]
     Active Substance: ROSUVASTATIN CALCIUM
     Dosage: DOSE: 1DD1?STRENGTH: 5 MG
     Route: 048
  9. ISOSORBIDE DINITRATE. [Concomitant]
     Active Substance: ISOSORBIDE DINITRATE
     Dosage: STRENGTH: 5 MG
     Route: 048
  10. ATACAND [Suspect]
     Active Substance: CANDESARTAN CILEXETIL
     Route: 048
     Dates: start: 20150924, end: 20151030
  11. FUROSEMIDE. [Suspect]
     Active Substance: FUROSEMIDE
     Route: 048
     Dates: start: 20150924
  12. ACETYLSALICYLIC ACID [Concomitant]
     Active Substance: ASPIRIN
     Dosage: DOSE: 1DD1?STRENGTH: 80 MG
     Route: 048
  13. LEVOTHYROXINE. [Concomitant]
     Active Substance: LEVOTHYROXINE
     Dosage: DOSE: 1DD1?STRENGTH: 25 MCG (NATRIUM)
     Route: 048
  14. PRIMPERAN [Concomitant]
     Active Substance: METOCLOPRAMIDE HYDROCHLORIDE
     Dosage: DOSE: 1DD1?STRENGTH: 10 MG
     Route: 054
  15. PANTOPRAZOLE [Concomitant]
     Active Substance: PANTOPRAZOLE SODIUM
     Dosage: DOSE: 1DD1?STRENGTH: 40 MG
     Route: 048
  16. FLUIMUCIL [Concomitant]
     Active Substance: ACETYLCYSTEINE
     Dosage: DOSE: 1DD1?STRENGTH: 600 MG
     Route: 048
  17. ACENOCOUMAROL [Concomitant]
     Active Substance: ACENOCOUMAROL
     Dosage: DOSE: ACCORDING TO SCHEDULE?STRENGTH: 1 MG
     Route: 048
  18. CYRESS [Concomitant]
     Active Substance: BARNIDIPINE HYDROCHLORIDE
     Dosage: DOSE: 1DD1?STRENGTH: 10 MG
     Route: 048
  19. ALLOPURINOL. [Concomitant]
     Active Substance: ALLOPURINOL
     Dosage: DOSE: 1DD2?STRENGTH: 100 MG
     Route: 048

REACTIONS (5)
  - Hyperhidrosis [Recovered/Resolved]
  - Hallucination [Recovered/Resolved]
  - Hypotension [Recovered/Resolved]
  - Bradycardia [Recovered/Resolved]
  - Syncope [Recovered/Resolved]

NARRATIVE: CASE EVENT DATE: 20151027
